FAERS Safety Report 18681203 (Version 1)
Quarter: 2020Q4

REPORT INFORMATION
  Report Type: Spontaneous
  Country: US (occurrence: US)
  Receive Date: 20201229
  Receipt Date: 20201229
  Transmission Date: 20210114
  Serious: Yes (Hospitalization)
  Sender: FDA-Public Use
  Company Number: None

PATIENT
  Age: 69 Year
  Sex: Female
  Weight: 63 kg

DRUGS (14)
  1. ALBUTEROL SULFATE 108, 2 PUFFS QID PRN [Concomitant]
     Dates: start: 20200415
  2. BIOTIN 1 TAB DAILY [Concomitant]
     Dates: start: 20150108
  3. METOCLOPRAMIDE HCL 10MG Q8H PRN [Concomitant]
     Dates: start: 20201220
  4. PITAVASTATIN CALCIUM 2MG DAILY [Concomitant]
     Dates: start: 20200211
  5. CALCIUM CARB-CHOLECALCIFEROL 500-600MG BID [Concomitant]
     Dates: start: 20170511
  6. FAMOTIDINE 40MG QHS [Concomitant]
     Dates: start: 20200624
  7. UPADACITINIB 15MG TB24 DAILY [Concomitant]
     Dates: start: 20201220
  8. MULTIVITAMIN 1CAP DAILY [Concomitant]
     Dates: start: 20160518
  9. PREDNISONE 5MG BID [Concomitant]
     Dates: start: 20160626
  10. AMLODIPINE 2.5MG DAILY [Concomitant]
     Dates: start: 20200909
  11. BAMLANIVIMAB. [Suspect]
     Active Substance: BAMLANIVIMAB
     Indication: COVID-19
  12. ACETAMINOPHEN 500 MG PRN [Concomitant]
     Dates: start: 20190715
  13. METOPROLOL SUCCINATE 50MG DAILY [Concomitant]
     Dates: start: 20200115
  14. ONDANSETRON 4MG Q8H PRN [Concomitant]
     Dates: start: 20201220

REACTIONS (1)
  - Acute respiratory failure [None]

NARRATIVE: CASE EVENT DATE: 20201222
